FAERS Safety Report 8841742 (Version 1)
Quarter: 2012Q4

REPORT INFORMATION
  Report Type: Spontaneous
  Country: US (occurrence: None)
  Receive Date: 20121011
  Receipt Date: 20121011
  Transmission Date: 20130627
  Serious: Yes (Other)
  Sender: FDA-Public Use
  Company Number: 2QLT2012US01037

PATIENT
  Age: 85 Year
  Sex: Female

DRUGS (3)
  1. VISUDYNE [Suspect]
     Indication: AGE-RELATED MACULAR DEGENERATION
     Dates: start: 20120928, end: 20120928
  2. ANTIHYPERTENSIVES (UNSPECIFIED) [Concomitant]
  3. AVASTIN [Concomitant]

REACTIONS (2)
  - Visual acuity reduced [None]
  - Macular oedema [None]
